FAERS Safety Report 14279151 (Version 3)
Quarter: 2020Q3

REPORT INFORMATION
  Report Type: Report from Study
  Country: US (occurrence: US)
  Receive Date: 20171212
  Receipt Date: 20200803
  Transmission Date: 20201102
  Serious: Yes (Other)
  Sender: FDA-Public Use
  Company Number: US-EMD SERONO-E2B_90000619

PATIENT
  Age: 27 Year
  Sex: Female

DRUGS (2)
  1. REBIF [Suspect]
     Active Substance: INTERFERON BETA-1A
     Dosage: REBIF PREFILLED SYRINGE
     Route: 058
     Dates: start: 20200309, end: 202005
  2. REBIF [Suspect]
     Active Substance: INTERFERON BETA-1A
     Indication: RELAPSING-REMITTING MULTIPLE SCLEROSIS
     Dosage: REBIJECT II
     Route: 058
     Dates: start: 20171003

REACTIONS (10)
  - Pyrexia [Not Recovered/Not Resolved]
  - Nervousness [Not Recovered/Not Resolved]
  - Cerebrovascular accident [Recovered/Resolved]
  - Blindness transient [Recovered/Resolved]
  - Headache [Not Recovered/Not Resolved]
  - Photopsia [Recovered/Resolved]
  - Adverse drug reaction [Recovered/Resolved]
  - Chills [Not Recovered/Not Resolved]
  - Pain [Not Recovered/Not Resolved]
  - Injection site pain [Not Recovered/Not Resolved]

NARRATIVE: CASE EVENT DATE: 20171204
